FAERS Safety Report 19516552 (Version 1)
Quarter: 2021Q3

REPORT INFORMATION
  Report Type: Report from Study
  Country: CN (occurrence: CN)
  Receive Date: 20210710
  Receipt Date: 20210710
  Transmission Date: 20211014
  Serious: Yes (Other)
  Sender: FDA-Public Use
  Company Number: CN-UCBSA-2021032768

PATIENT

DRUGS (1)
  1. LEVETIRACETAM. [Suspect]
     Active Substance: LEVETIRACETAM
     Indication: EPILEPSY
     Dosage: 10 MILLIGRAM/KILOGRAM PER DAY
     Route: 048

REACTIONS (4)
  - Liver disorder [Unknown]
  - Drug ineffective [Unknown]
  - Thrombocytopenia [Unknown]
  - Dizziness [Unknown]
